FAERS Safety Report 15188215 (Version 1)
Quarter: 2018Q3

REPORT INFORMATION
  Report Type: Spontaneous
  Country: JP (occurrence: JP)
  Receive Date: 20180724
  Receipt Date: 20180724
  Transmission Date: 20181010
  Serious: Yes (Hospitalization)
  Sender: FDA-Public Use
  Company Number: JP-ABBVIE-18S-087-2373535-00

PATIENT

DRUGS (2)
  1. PHYSIOLOGICAL SALINE SOLUTION [Concomitant]
     Active Substance: SODIUM CHLORIDE
     Indication: TRANSPOSITION OF THE GREAT VESSELS
     Route: 053
  2. POPSCAINE [Suspect]
     Active Substance: LEVOBUPIVACAINE HYDROCHLORIDE
     Indication: TRANSPOSITION OF THE GREAT VESSELS
     Dosage: 50 MG/10ML
     Route: 053

REACTIONS (1)
  - Tremor [Recovered/Resolved]
